FAERS Safety Report 6415414-8 (Version None)
Quarter: 2009Q4

REPORT INFORMATION
  Report Type: 
  Country: None (occurrence: None)
  Receive Date: 20091027
  Receipt Date: 20091021
  Transmission Date: 20100525
  Serious: Yes (Hospitalization)
  Sender: FDA-Public Use
  Company Number: US-KINGPHARMUSA00001-K200901274

PATIENT
  Sex: Female

DRUGS (1)
  1. FLECTOR [Suspect]
     Dosage: UNK PATCH, SINGLE
     Route: 048

REACTIONS (1)
  - INTENTIONAL DRUG MISUSE [None]
